FAERS Safety Report 24364875 (Version 1)
Quarter: 2024Q3

REPORT INFORMATION
  Report Type: Spontaneous
  Country: JP (occurrence: JP)
  Receive Date: 20240926
  Receipt Date: 20240926
  Transmission Date: 20241016
  Serious: Yes (Death)
  Sender: ROCHE
  Company Number: JP-CHUGAI-2024031269

PATIENT
  Sex: Male

DRUGS (1)
  1. ROZLYTREK [Suspect]
     Active Substance: ENTRECTINIB
     Indication: Non-small cell lung cancer
     Dosage: 600 MILLIGRAM, QD
     Route: 050
     Dates: start: 20240502

REACTIONS (2)
  - Pleural effusion [Fatal]
  - Cardiac failure [Fatal]

NARRATIVE: CASE EVENT DATE: 20240524
